FAERS Safety Report 4754724-7 (Version None)
Quarter: 2005Q3

REPORT INFORMATION
  Report Type: 
  Country: None (occurrence: None)
  Receive Date: 20050829
  Receipt Date: 20050815
  Transmission Date: 20060218
  Serious: Yes (Hospitalization)
  Sender: FDA-Public Use
  Company Number: 200512353JP

PATIENT
  Age: 51 Year
  Sex: Male
  Weight: 71.9 kg

DRUGS (2)
  1. TAXOTERE [Suspect]
     Indication: PROSTATE CANCER
     Dosage: DOSE: 70-60 MG/M2
     Route: 041
     Dates: start: 20050318, end: 20050729
  2. PREDNISOLONE [Concomitant]
     Indication: PROSTATE CANCER
     Route: 048
     Dates: start: 20050318, end: 20050801

REACTIONS (4)
  - ABDOMINAL DISTENSION [None]
  - ANOREXIA [None]
  - MALAISE [None]
  - PYREXIA [None]
